FAERS Safety Report 7808830-0 (Version None)
Quarter: 2011Q4

REPORT INFORMATION
  Report Type: 
  Country: None (occurrence: None)
  Receive Date: 20111012
  Receipt Date: 20111005
  Transmission Date: 20120403
  Serious: Yes (Death, Hospitalization)
  Sender: FDA-Public Use
  Company Number: PHHY2011GB89175

PATIENT
  Age: 52 Year
  Sex: Male

DRUGS (6)
  1. ANTIBIOTICS [Concomitant]
  2. PAMIDRONATE DISODIUM [Suspect]
  3. THALIDOMIDE [Concomitant]
  4. CYCLOPHOSPHAMIDE [Concomitant]
  5. CORTICOSTEROIDS [Concomitant]
  6. DEXAMETHASONE [Concomitant]

REACTIONS (8)
  - PURPURA [None]
  - MALAISE [None]
  - PAIN [None]
  - NECROSIS [None]
  - METABOLIC DISORDER [None]
  - VASCULAR CALCIFICATION [None]
  - CALCIPHYLAXIS [None]
  - SEPSIS [None]
